FAERS Safety Report 10196122 (Version 1)
Quarter: 2014Q2

REPORT INFORMATION
  Report Type: Spontaneous
  Country: US (occurrence: None)
  Receive Date: 20140523
  Receipt Date: 20140523
  Transmission Date: 20141212
  Serious: Yes (Hospitalization)
  Sender: FDA-Public Use
  Company Number: None

PATIENT
  Age: 55 Year
  Sex: Male

DRUGS (7)
  1. INSULIN [Suspect]
     Indication: HYPERKALAEMIA
     Route: 042
     Dates: start: 20140407, end: 20140407
  2. ACETAMINOPHEN [Concomitant]
  3. CHLORHEXADINE [Concomitant]
  4. EPINEPHRINE [Concomitant]
  5. FAMOTIDINE [Concomitant]
  6. PHENYLEPHRINE [Concomitant]
  7. PRAVASTATIN [Concomitant]

REACTIONS (1)
  - Blood glucose decreased [None]
